FAERS Safety Report 12242225 (Version 2)
Quarter: 2016Q2

REPORT INFORMATION
  Report Type: Spontaneous
  Country: US (occurrence: US)
  Receive Date: 20160406
  Receipt Date: 20160622
  Transmission Date: 20160815
  Serious: Yes (Other)
  Sender: FDA-Public Use
  Company Number: US-SA-2016SA065942

PATIENT
  Age: 50 Year
  Sex: Male
  Weight: 136 kg

DRUGS (2)
  1. LOVENOX [Suspect]
     Active Substance: ENOXAPARIN SODIUM
     Indication: LOWER LIMB FRACTURE
     Route: 065
     Dates: start: 201601, end: 20160311
  2. LOVENOX [Suspect]
     Active Substance: ENOXAPARIN SODIUM
     Indication: INFECTION
     Route: 065
     Dates: start: 201601, end: 20160311

REACTIONS (3)
  - Burning sensation [Not Recovered/Not Resolved]
  - Blood urine present [Not Recovered/Not Resolved]
  - Urinary tract infection [Not Recovered/Not Resolved]
